FAERS Safety Report 23800386 (Version 1)
Quarter: 2024Q2

REPORT INFORMATION
  Report Type: Spontaneous
  Country: US (occurrence: US)
  Receive Date: 20240430
  Receipt Date: 20240430
  Transmission Date: 20240716
  Serious: No
  Sender: FDA-Public Use
  Company Number: US-Prasco Laboratories-PRAS20240867

PATIENT
  Sex: Female

DRUGS (1)
  1. ESTRADIOL [Suspect]
     Active Substance: ESTRADIOL
     Indication: Product use in unapproved indication
     Dosage: UNKNOWN
     Route: 067

REACTIONS (4)
  - Madarosis [Unknown]
  - Alopecia [Unknown]
  - Product use issue [Unknown]
  - Off label use [Unknown]
